FAERS Safety Report 6202453-5 (Version None)
Quarter: 2009Q2

REPORT INFORMATION
  Report Type: 
  Country: None (occurrence: None)
  Receive Date: 20090526
  Receipt Date: 20090521
  Transmission Date: 20091009
  Serious: Yes (Other)
  Sender: FDA-Public Use
  Company Number: US-PFIZER INC-2005139734

PATIENT
  Sex: Female
  Weight: 60 kg

DRUGS (10)
  1. PROVERA [Suspect]
     Indication: HORMONE REPLACEMENT THERAPY
     Dosage: 2.5 MG, UNK
     Route: 048
     Dates: start: 19900101, end: 19970101
  2. PREMARIN [Suspect]
     Indication: HORMONE REPLACEMENT THERAPY
     Dosage: 0.625 MG, UNK
     Route: 065
     Dates: start: 19900101, end: 19970101
  3. PREMARIN [Suspect]
     Dosage: UNK
     Dates: start: 19990101, end: 20000101
  4. ESTRATEST H.S. [Suspect]
     Indication: HORMONE REPLACEMENT THERAPY
     Dosage: 0.625MG/1.25 AND 1.25/2.5 TABLET
     Route: 065
     Dates: start: 19980101, end: 19990101
  5. ESTRATEST H.S. [Suspect]
     Route: 065
     Dates: start: 20010101, end: 20020101
  6. MEDROXYPROGESTERONE ACETATE [Suspect]
     Indication: HORMONE REPLACEMENT THERAPY
     Route: 065
     Dates: start: 19980101, end: 20000101
  7. MEDROXYPROGESTERONE ACETATE [Suspect]
     Route: 065
     Dates: start: 20010101, end: 20020101
  8. PREMPRO [Suspect]
     Indication: HORMONE REPLACEMENT THERAPY
     Dosage: 2.5 MG, UNK
     Route: 065
     Dates: start: 19990101, end: 20000101
  9. PREMPRO [Suspect]
     Dosage: 0.625 MG, UNK
     Dates: start: 20000101, end: 20020101
  10. ZOCOR [Concomitant]
     Indication: BLOOD CHOLESTEROL
     Dosage: 40 MG, UNK
     Dates: start: 20020601, end: 20020701

REACTIONS (1)
  - BREAST CANCER [None]
